FAERS Safety Report 9409854 (Version 2)
Quarter: 2013Q3

REPORT INFORMATION
  Report Type: Spontaneous
  Country: FR (occurrence: FR)
  Receive Date: 20130515
  Receipt Date: 20130722
  Transmission Date: 20140515
  Serious: Yes (Life-Threatening, Hospitalization)
  Sender: FDA-Public Use
  Company Number: 2013036001

PATIENT
  Age: 78 Year
  Sex: Female

DRUGS (8)
  1. PRIVIGEN [Suspect]
     Indication: ACQUIRED VON WILLEBRAND^S DISEASE
     Dosage: 40 G TOTAL, 2X20G
     Route: 042
     Dates: start: 20130420, end: 20130420
  2. ORAL ANTIDIABETICS (ORAL ANTIDIABETICS) [Concomitant]
  3. OLMESARTAN (OLMESARTAN) (TABLET) (OLMESARTAN) [Concomitant]
  4. DOLIPRANE (PARACETAMOL) [Concomitant]
  5. DERINOX /00886201/ (DERINOX /00886201/) [Concomitant]
  6. FENOFIBRATE (FENOFIBRATE) (FENOFIBRATE) [Concomitant]
  7. LEVOTHYROXINE (LEVOTHYROXINE) [Concomitant]
  8. LANSOPRAZOLE (LANSOPRAZOLE) [Concomitant]

REACTIONS (4)
  - Ischaemic stroke [None]
  - Leukopenia [None]
  - Neutropenia [None]
  - Off label use [None]
